FAERS Safety Report 7268104-6 (Version None)
Quarter: 2011Q1

REPORT INFORMATION
  Report Type: 
  Country: None (occurrence: None)
  Receive Date: 20110201
  Receipt Date: 20110125
  Transmission Date: 20110831
  Serious: Yes (Life-Threatening, Hospitalization)
  Sender: FDA-Public Use
  Company Number: FR-PFIZER INC-2011017491

PATIENT
  Age: 53 Year
  Sex: Female
  Weight: 59 kg

DRUGS (6)
  1. MOPRAL [Concomitant]
     Indication: GASTROOESOPHAGEAL REFLUX DISEASE
     Dosage: UNK
     Route: 048
     Dates: start: 20100111
  2. DIFFU K [Concomitant]
     Indication: HYPOKALAEMIA
     Dosage: UNK
     Route: 048
     Dates: start: 20100111
  3. CORTANCYL [Concomitant]
     Indication: BRAIN OEDEMA
     Dosage: UNK
     Route: 048
     Dates: start: 20110110
  4. SUTENT [Suspect]
     Indication: GLIOBLASTOMA
     Dosage: 50 MG, 1X/DAY
     Route: 048
     Dates: start: 20101220, end: 20110109
  5. KEPPRA [Concomitant]
     Indication: EPILEPSY
     Dosage: UNK
     Route: 048
     Dates: start: 20101001
  6. ALPRAZOLAM [Concomitant]
     Indication: ANXIETY
     Dosage: UNK
     Route: 048
     Dates: start: 20100901

REACTIONS (1)
  - COMA [None]
